FAERS Safety Report 4357347-7 (Version None)
Quarter: 2004Q2

REPORT INFORMATION
  Report Type: 
  Country: None (occurrence: None)
  Receive Date: 20040511
  Receipt Date: 20040511
  Transmission Date: 20050107
  Serious: Yes (Hospitalization)
  Sender: FDA-Public Use
  Company Number: None

PATIENT
  Age: 79 Year
  Sex: Female
  Weight: 92.5 kg

DRUGS (6)
  1. MINOXIDIL [Suspect]
     Indication: HYPERTENSION
     Dosage: 2.5 MG PO BID
     Route: 048
  2. CAPTOPRIL [Concomitant]
  3. HYDRALAZINE HCL [Concomitant]
  4. COREG [Concomitant]
  5. LIPITOR [Concomitant]
  6. INSULIN [Concomitant]

REACTIONS (7)
  - ASTHENIA [None]
  - DIZZINESS [None]
  - DYSPNOEA [None]
  - DYSSTASIA [None]
  - HEART RATE INCREASED [None]
  - PALPITATIONS [None]
  - PERICARDIAL EFFUSION [None]
